FAERS Safety Report 20289413 (Version 3)
Quarter: 2022Q1

REPORT INFORMATION
  Report Type: Spontaneous
  Country: US (occurrence: US)
  Receive Date: 20220104
  Receipt Date: 20220324
  Transmission Date: 20220423
  Serious: Yes (Disabling, Other)
  Sender: FDA-Public Use
  Company Number: US-SA-SAC20220101000195

PATIENT
  Age: 86 Year
  Sex: Male
  Weight: 95.2 kg

DRUGS (20)
  1. PLAVIX [Suspect]
     Active Substance: CLOPIDOGREL BISULFATE
     Indication: Thrombosis prophylaxis
     Dosage: 75MG QD
  2. ELIQUIS [Suspect]
     Active Substance: APIXABAN
     Indication: Cerebrovascular accident prophylaxis
     Dosage: 2.5 MG, BID
     Route: 048
  3. APIXABAN [Suspect]
     Active Substance: APIXABAN
     Indication: Cardiovascular event prophylaxis
     Route: 048
  4. ASPIRIN [Concomitant]
     Active Substance: ASPIRIN
  5. ACETAMINOPHEN [Concomitant]
     Active Substance: ACETAMINOPHEN
  6. AMLODIPINE [Concomitant]
     Active Substance: AMLODIPINE BESYLATE
     Indication: Neuropathy peripheral
  7. ATORVASTATIN [Concomitant]
     Active Substance: ATORVASTATIN
  8. CARVEDILOL [Concomitant]
     Active Substance: CARVEDILOL
  9. VITAMIN D3 [Concomitant]
     Active Substance: CHOLECALCIFEROL
  10. BYDUREON BCISE [Concomitant]
     Active Substance: EXENATIDE
     Dosage: 2MG QW
  11. LASIX [Concomitant]
     Active Substance: FUROSEMIDE
     Dosage: 300MG
  12. GABAPENTIN [Concomitant]
     Active Substance: GABAPENTIN
     Indication: Neuropathy peripheral
     Dosage: 300MG BID
  13. LANTUS [Concomitant]
     Active Substance: INSULIN GLARGINE
     Dosage: 25 IU, QD
  14. SYNTHROID [Concomitant]
     Active Substance: LEVOTHYROXINE SODIUM
     Indication: Thyroid disorder
  15. MAGNESIUM OXIDE [Concomitant]
     Active Substance: MAGNESIUM OXIDE
  16. TELMISARTAN [Concomitant]
     Active Substance: TELMISARTAN
  17. VITAMIN E [Concomitant]
     Active Substance: .ALPHA.-TOCOPHEROL
  18. POTASSIUM [Concomitant]
     Active Substance: POTASSIUM
  19. LIPITOR [Concomitant]
     Active Substance: ATORVASTATIN CALCIUM
  20. CYANOCOBALAMIN [Concomitant]
     Active Substance: CYANOCOBALAMIN
     Dosage: UNK

REACTIONS (8)
  - Walking aid user [Unknown]
  - Corrective lens user [Unknown]
  - Haemorrhage [Unknown]
  - Skin atrophy [Unknown]
  - Pain [Unknown]
  - Sensitive skin [Unknown]
  - Purpura [Unknown]
  - Dizziness [Unknown]
